FAERS Safety Report 22745021 (Version 3)
Quarter: 2023Q4

REPORT INFORMATION
  Report Type: Report from Study
  Country: CA (occurrence: CA)
  Receive Date: 20230725
  Receipt Date: 20231025
  Transmission Date: 20240110
  Serious: Yes (Hospitalization)
  Sender: FDA-Public Use
  Company Number: CA-JNJFOC-20211152266

PATIENT
  Age: 8 Year
  Sex: Male
  Weight: 23 kg

DRUGS (3)
  1. REMICADE [Suspect]
     Active Substance: INFLIXIMAB
     Indication: Colitis ulcerative
     Dosage: 10 MG/KG AT WEEK S0,1,4 THEN EVERY 4 WEEKS. PATIENT RECEIVED DOSE ON 10/DEC/2021
     Route: 042
  2. REMICADE [Suspect]
     Active Substance: INFLIXIMAB
     Route: 042
  3. REMICADE [Suspect]
     Active Substance: INFLIXIMAB
     Dosage: DOCTOR REQUESTED A STAT DOSE OF 350 MG AND THEN CONTINUE MAINTENANCE 350 MG EVERY 4 WEEKS AFTER
     Route: 042

REACTIONS (4)
  - Colitis ulcerative [Unknown]
  - Pain [Unknown]
  - Therapeutic product effect decreased [Unknown]
  - Off label use [Unknown]

NARRATIVE: CASE EVENT DATE: 20211113
